FAERS Safety Report 7622408-3 (Version None)
Quarter: 2011Q3

REPORT INFORMATION
  Report Type: 
  Country: None (occurrence: None)
  Receive Date: 20110720
  Receipt Date: 20110708
  Transmission Date: 20111222
  Serious: Yes (Hospitalization, Other)
  Sender: FDA-Public Use
  Company Number: US-BAYER-2011-016002

PATIENT
  Age: 46 Year
  Sex: Female
  Weight: 74 kg

DRUGS (17)
  1. YASMIN [Suspect]
     Indication: ORAL CONTRACEPTION
  2. DURAGESIC-100 [Concomitant]
     Route: 048
  3. WELLBUTRIN [Concomitant]
     Route: 048
  4. YASMIN [Suspect]
     Indication: ACNE
     Dosage: UNK
     Dates: start: 20030101, end: 20080101
  5. FENTANYL-100 [Concomitant]
     Dosage: 25 ?G, Q72HR
  6. ZOFRAN [Concomitant]
  7. LOMOTIL [DIPHENOXYLATE HYDROCHLORIDE] [Concomitant]
     Indication: DIARRHOEA
     Dosage: 2.5 MG, UNK
     Route: 048
  8. BUPROPION HCL [Concomitant]
     Dosage: 100 MG, BID
  9. DILAUDID [Concomitant]
     Indication: PAIN
  10. FLEXERIL [Concomitant]
     Dosage: 10 MG, UNK
     Route: 048
  11. ZOFRAN [Concomitant]
  12. PHENERGAN HCL [Concomitant]
  13. PAXIL [Concomitant]
     Route: 048
  14. PAXIL CR [Concomitant]
     Dosage: 12.5 MG, UNK
  15. DARVOCET [Concomitant]
     Dosage: UNK UNK, PRN
  16. DILAUDID [Concomitant]
  17. PHENERGAN HCL [Concomitant]

REACTIONS (8)
  - HEADACHE [None]
  - PANCREATITIS [None]
  - DYSPEPSIA [None]
  - CHOLELITHIASIS [None]
  - GALLBLADDER OPERATION [None]
  - PULMONARY EMBOLISM [None]
  - THROMBOSIS [None]
  - CHOLECYSTITIS [None]
